FAERS Safety Report 4904385-9 (Version None)
Quarter: 2006Q1

REPORT INFORMATION
  Report Type: 
  Country: None (occurrence: None)
  Receive Date: 20060208
  Receipt Date: 20050830
  Transmission Date: 20060701
  Serious: Yes (Other)
  Sender: FDA-Public Use
  Company Number: US-GLAXOSMITHKLINE-A0572395A

PATIENT
  Age: 66 Year
  Sex: Female

DRUGS (5)
  1. PAXIL [Suspect]
     Dosage: 10MG TWICE PER DAY
     Route: 048
     Dates: start: 20010911
  2. ASPIRIN [Concomitant]
  3. MULTI-VITAMIN [Concomitant]
  4. ADVAIR DISKUS 100/50 [Concomitant]
  5. ALBUTEROL [Concomitant]

REACTIONS (13)
  - ABNORMAL DREAMS [None]
  - ANXIETY [None]
  - BLOOD PRESSURE INCREASED [None]
  - DRUG DEPENDENCE [None]
  - DRUG WITHDRAWAL SYNDROME [None]
  - DRY EYE [None]
  - FEAR [None]
  - HANGOVER [None]
  - INCREASED APPETITE [None]
  - INSOMNIA [None]
  - MALAISE [None]
  - MENTAL IMPAIRMENT [None]
  - SOMNOLENCE [None]
